FAERS Safety Report 19447467 (Version 1)
Quarter: 2021Q2

REPORT INFORMATION
  Report Type: Spontaneous
  Country: US (occurrence: US)
  Receive Date: 20210621
  Receipt Date: 20210621
  Transmission Date: 20210717
  Serious: No
  Sender: FDA-Public Use
  Company Number: None

PATIENT
  Sex: Male

DRUGS (13)
  1. DRISDOL [Concomitant]
     Active Substance: ERGOCALCIFEROL
  2. FISH OIL [Concomitant]
     Active Substance: FISH OIL
  3. ZOFRAN 8 MG TAB [Concomitant]
  4. EMLA [Concomitant]
     Active Substance: LIDOCAINE\PRILOCAINE
  5. PROCHLORPERAZINE 10 MG TAB [Concomitant]
  6. ASPIRIN 81 MG TAB [Concomitant]
  7. BEPREVE [Concomitant]
     Active Substance: BEPOTASTINE BESILATE
  8. CAPECITABINE 500 MG TAB [Suspect]
     Active Substance: CAPECITABINE
     Indication: APPENDIX CANCER
     Route: 048
  9. EFFEXOR XR [Concomitant]
     Active Substance: VENLAFAXINE HYDROCHLORIDE
  10. LIPITOR 30 MG TAB [Concomitant]
  11. ADALAT CC [Concomitant]
     Active Substance: NIFEDIPINE
  12. FLONASE NS [Concomitant]
  13. VOLTAREN 1 % [Concomitant]

REACTIONS (1)
  - Disease progression [None]
